FAERS Safety Report 4647858-9 (Version None)
Quarter: 2005Q2

REPORT INFORMATION
  Report Type: 
  Country: None (occurrence: None)
  Receive Date: 20050428
  Receipt Date: 20050422
  Transmission Date: 20051028
  Serious: Yes (Hospitalization)
  Sender: FDA-Public Use
  Company Number: 251103-12

PATIENT
  Age: 45 Year
  Sex: Female

DRUGS (3)
  1. QUILONORM RETARD [Suspect]
     Route: 048
     Dates: start: 20030822, end: 20030903
  2. EFFEXOR [Concomitant]
     Route: 048
     Dates: start: 20030101
  3. TEMESTA [Concomitant]
     Route: 048
     Dates: start: 20030826

REACTIONS (1)
  - SEBORRHOEIC DERMATITIS [None]
